FAERS Safety Report 15859405 (Version 7)
Quarter: 2019Q2

REPORT INFORMATION
  Report Type: Spontaneous
  Country: CN (occurrence: CN)
  Receive Date: 20190123
  Receipt Date: 20190520
  Transmission Date: 20190711
  Serious: Yes (Death, Life-Threatening, Hospitalization)
  Sender: FDA-Public Use
  Company Number: CN-CELGENEUS-CHN-20190106529

PATIENT
  Age: 68 Year
  Sex: Female
  Weight: 66 kg

DRUGS (62)
  1. TORSEMIDE. [Concomitant]
     Active Substance: TORSEMIDE
     Indication: PROPHYLAXIS
     Route: 041
     Dates: start: 20190116, end: 20190116
  2. BLOOD [Concomitant]
     Active Substance: WHOLE BLOOD
     Route: 065
     Dates: start: 20190107, end: 20190107
  3. BLOOD [Concomitant]
     Active Substance: WHOLE BLOOD
     Route: 065
     Dates: start: 20190113, end: 20190113
  4. HEPATOCYTE GROWTH-PROMOTING FACTORS [Concomitant]
     Indication: ASPARTATE AMINOTRANSFERASE INCREASED
  5. ADEMETIONINE 1 4-BUTANEDISULFONATE [Concomitant]
     Indication: PROPHYLAXIS
     Dosage: 1000 MILLIGRAM
     Route: 041
     Dates: start: 20181229, end: 20181231
  6. CALCIUM GLUCONATE. [Concomitant]
     Active Substance: CALCIUM GLUCONATE
     Indication: ALLERGY PROPHYLAXIS
     Dosage: 20 MILLILITER
     Route: 041
     Dates: start: 20190105, end: 20190105
  7. BLOOD [Concomitant]
     Active Substance: WHOLE BLOOD
     Route: 065
     Dates: start: 20181231, end: 20181231
  8. BLOOD [Concomitant]
     Active Substance: WHOLE BLOOD
     Route: 065
     Dates: start: 20190105, end: 20190105
  9. BLOOD [Concomitant]
     Active Substance: WHOLE BLOOD
     Route: 065
     Dates: start: 20190111, end: 20190111
  10. VENETOCLAX. [Concomitant]
     Active Substance: VENETOCLAX
     Dosage: 400 MILLIGRAM
     Route: 048
     Dates: start: 20181213, end: 20190107
  11. ALLOPURINOL. [Concomitant]
     Active Substance: ALLOPURINOL
     Indication: PROPHYLAXIS
     Route: 048
     Dates: start: 20181210, end: 20181228
  12. GM-CSF [Concomitant]
     Active Substance: GRANULOCYTE-MACROPHAGE COLONY-STIMULATING FACTOR
     Indication: NEUTROPENIA
  13. G-CSF [Concomitant]
     Active Substance: GRANULOCYTE COLONY-STIMULATING FACTOR NOS
     Indication: LEUKOPENIA
     Route: 058
     Dates: start: 20181214, end: 20181221
  14. FUROSEMIDE. [Concomitant]
     Active Substance: FUROSEMIDE
     Indication: PROPHYLAXIS
     Route: 041
     Dates: start: 20190105, end: 20190105
  15. COMPOUND AMINO ACID INJECTION L8AA [Concomitant]
     Indication: DECREASED APPETITE
     Route: 041
     Dates: start: 20190106, end: 20190106
  16. OMEPRAZOLE. [Concomitant]
     Active Substance: OMEPRAZOLE
     Indication: PROPHYLAXIS
     Dosage: 40 MILLIGRAM
     Route: 041
     Dates: start: 20181230, end: 20190101
  17. GM-CSF [Concomitant]
     Active Substance: GRANULOCYTE-MACROPHAGE COLONY-STIMULATING FACTOR
     Indication: LEUKOPENIA
     Route: 058
     Dates: start: 20181214, end: 20190111
  18. G-CSF [Concomitant]
     Active Substance: GRANULOCYTE COLONY-STIMULATING FACTOR NOS
     Indication: NEUTROPENIA
     Route: 058
     Dates: start: 20181230, end: 20190106
  19. G-CSF [Concomitant]
     Active Substance: GRANULOCYTE COLONY-STIMULATING FACTOR NOS
     Dosage: 600 MICROGRAM
     Route: 058
     Dates: start: 20190106, end: 20190116
  20. POTASSIUM CITRATE. [Concomitant]
     Active Substance: POTASSIUM CITRATE
     Indication: HYPOKALAEMIA
     Dosage: 6 DOSAGE FORMS
     Route: 048
     Dates: start: 20190108, end: 20190116
  21. CALCIUM GLUCONATE. [Concomitant]
     Active Substance: CALCIUM GLUCONATE
     Dosage: 20 MILLILITER
     Route: 041
     Dates: start: 20190106, end: 20190106
  22. CALCIUM GLUCONATE. [Concomitant]
     Active Substance: CALCIUM GLUCONATE
     Dosage: 10 MILLILITER
     Route: 041
     Dates: start: 20190110, end: 20190112
  23. FUROSEMIDE. [Concomitant]
     Active Substance: FUROSEMIDE
     Dosage: 20 MILLIGRAM
     Route: 041
     Dates: start: 20190112, end: 20190114
  24. FUROSEMIDE. [Concomitant]
     Active Substance: FUROSEMIDE
     Route: 041
     Dates: start: 20190116, end: 20190116
  25. MEGESTROL [Concomitant]
     Active Substance: MEGESTROL
     Indication: DECREASED APPETITE
     Dosage: 320 MILLIGRAM
     Route: 048
     Dates: start: 20190106
  26. BLOOD [Concomitant]
     Active Substance: WHOLE BLOOD
     Route: 065
     Dates: start: 20181229, end: 20181229
  27. BLOOD [Concomitant]
     Active Substance: WHOLE BLOOD
     Route: 065
     Dates: start: 20190101, end: 20190101
  28. SODIUM BICARBONATE. [Concomitant]
     Active Substance: SODIUM BICARBONATE
     Route: 041
     Dates: start: 20190113, end: 20190116
  29. CALCIUM GLUCONATE. [Concomitant]
     Active Substance: CALCIUM GLUCONATE
     Indication: TRANSFUSION
     Dosage: 20 MILLILITER
     Route: 041
     Dates: start: 20190101, end: 20190101
  30. FUROSEMIDE. [Concomitant]
     Active Substance: FUROSEMIDE
     Dosage: 40 MILLIGRAM
     Route: 041
     Dates: start: 20190106, end: 20190106
  31. TORSEMIDE. [Concomitant]
     Active Substance: TORSEMIDE
     Indication: CARDIAC FAILURE
     Route: 041
     Dates: start: 20190113, end: 20190113
  32. BLOOD [Concomitant]
     Active Substance: WHOLE BLOOD
     Route: 065
     Dates: start: 20181217, end: 20181217
  33. VENETOCLAX. [Concomitant]
     Active Substance: VENETOCLAX
     Indication: ACUTE MYELOID LEUKAEMIA
     Dosage: 100 MILLIGRAM
     Route: 048
     Dates: start: 20181211, end: 20181211
  34. SODIUM BICARBONATE. [Concomitant]
     Active Substance: SODIUM BICARBONATE
     Indication: PROPHYLAXIS
     Route: 041
     Dates: start: 20181210, end: 20181228
  35. ORAL FLUIDS [Concomitant]
     Indication: PROPHYLAXIS
     Route: 048
     Dates: start: 20181208, end: 20181213
  36. OMEPRAZOLE. [Concomitant]
     Active Substance: OMEPRAZOLE
     Dosage: 60 MILLIGRAM
     Route: 041
     Dates: start: 20181210, end: 20181228
  37. HEPATOCYTE GROWTH-PROMOTING FACTORS [Concomitant]
     Indication: BLOOD LACTATE DEHYDROGENASE INCREASED
     Dosage: .12 GRAM
     Route: 041
     Dates: start: 20181212, end: 20190101
  38. POTASSIUM CHLORIDE. [Concomitant]
     Active Substance: POTASSIUM CHLORIDE
     Indication: PROPHYLAXIS
     Dosage: .75 GRAM
     Route: 041
     Dates: start: 20190110, end: 20190112
  39. CALCIUM GLUCONATE. [Concomitant]
     Active Substance: CALCIUM GLUCONATE
     Dosage: 20 MILLILITER
     Route: 041
     Dates: start: 20190107, end: 20190107
  40. FUROSEMIDE. [Concomitant]
     Active Substance: FUROSEMIDE
     Indication: CARDIAC FAILURE
     Route: 041
     Dates: start: 20190101, end: 20190101
  41. FUROSEMIDE. [Concomitant]
     Active Substance: FUROSEMIDE
     Dosage: 20 MILLIGRAM
     Route: 041
     Dates: start: 20190107, end: 20190110
  42. BLOOD [Concomitant]
     Active Substance: WHOLE BLOOD
     Route: 065
     Dates: start: 20181230, end: 20181230
  43. VENETOCLAX. [Concomitant]
     Active Substance: VENETOCLAX
     Dosage: 200 MILLIGRAM
     Route: 048
     Dates: start: 20181212, end: 20181212
  44. OMEPRAZOLE. [Concomitant]
     Active Substance: OMEPRAZOLE
     Dosage: 40 MILLIGRAM
     Route: 041
     Dates: start: 20190114, end: 20190116
  45. PALONOSETRON. [Concomitant]
     Active Substance: PALONOSETRON HYDROCHLORIDE
     Indication: PROPHYLAXIS
     Dosage: .25 MILLIGRAM
     Route: 041
     Dates: start: 20181212, end: 20181229
  46. CALCIUM GLUCONATE. [Concomitant]
     Active Substance: CALCIUM GLUCONATE
     Dosage: 20 MILLILITER
     Route: 041
     Dates: start: 20190113, end: 20190113
  47. FUROSEMIDE. [Concomitant]
     Active Substance: FUROSEMIDE
     Route: 041
     Dates: start: 20190111, end: 20190111
  48. BLOOD [Concomitant]
     Active Substance: WHOLE BLOOD
     Indication: PRODUCT USED FOR UNKNOWN INDICATION
     Route: 065
     Dates: start: 20181212, end: 20181212
  49. BLOOD [Concomitant]
     Active Substance: WHOLE BLOOD
     Route: 065
     Dates: start: 20181221, end: 20181221
  50. AZACITIDINE. [Suspect]
     Active Substance: AZACITIDINE
     Indication: ACUTE MYELOID LEUKAEMIA
     Route: 058
     Dates: start: 20181211, end: 20181217
  51. NORMAL SALINE [Concomitant]
     Active Substance: SODIUM CHLORIDE
     Indication: PROPHYLAXIS
     Route: 041
     Dates: start: 20181210, end: 20181213
  52. POTASSIUM CHLORIDE. [Concomitant]
     Active Substance: POTASSIUM CHLORIDE
     Dosage: 2 GRAM
     Route: 041
     Dates: start: 20190114, end: 20190115
  53. CARBAZOCHROME SODIUM SULFONATE [Concomitant]
     Active Substance: CARBAZOCHROME SODIUM SULFONATE
     Indication: HAEMORRHAGE PROPHYLAXIS
     Dosage: 80 MILLIGRAM
     Route: 041
     Dates: start: 20181229, end: 20190116
  54. CALCIUM GLUCONATE. [Concomitant]
     Active Substance: CALCIUM GLUCONATE
     Dosage: 10 MILLILITER
     Route: 041
     Dates: start: 20190114, end: 20190115
  55. FUROSEMIDE. [Concomitant]
     Active Substance: FUROSEMIDE
     Dosage: 60 MILLIGRAM
     Route: 041
     Dates: start: 20190115, end: 20190115
  56. COMPOUND AMINO ACID INJECTION L8AA [Concomitant]
     Indication: PROPHYLAXIS
     Dosage: 21.25 GRAM
     Route: 041
     Dates: start: 20190107, end: 20190108
  57. POTASSIUM CHLORIDE. [Concomitant]
     Active Substance: POTASSIUM CHLORIDE
     Indication: HYPOKALAEMIA
     Dosage: 2 GRAM
     Route: 041
     Dates: start: 20190107, end: 20190108
  58. ADEMETIONINE 1 4-BUTANEDISULFONATE [Concomitant]
     Dosage: 1000 MILLIGRAM
     Route: 041
     Dates: start: 20190102, end: 20190113
  59. ADEMETIONINE 1 4-BUTANEDISULFONATE [Concomitant]
     Dosage: 1.5 GRAM
     Route: 041
     Dates: start: 20190114, end: 20190116
  60. CALCIUM GLUCONATE. [Concomitant]
     Active Substance: CALCIUM GLUCONATE
     Dosage: 20 MILLILITER
     Route: 041
     Dates: start: 20190109, end: 20190109
  61. HUMAN ALBUMIN [Concomitant]
     Active Substance: ALBUMIN HUMAN
     Indication: HYPOALBUMINAEMIA
     Dosage: 10 GRAM
     Route: 041
     Dates: start: 20190106, end: 20190116
  62. COMPOUND AMINO ACID INJECTION L8AA [Concomitant]
     Dosage: 21.25 GRAM
     Route: 041
     Dates: start: 20190110, end: 20190110

REACTIONS (4)
  - Bacteraemia [Not Recovered/Not Resolved]
  - Pneumonia [Not Recovered/Not Resolved]
  - Death [Fatal]
  - Haemolysis [Not Recovered/Not Resolved]

NARRATIVE: CASE EVENT DATE: 20190106
